FAERS Safety Report 10545044 (Version 2)
Quarter: 2014Q4

REPORT INFORMATION
  Report Type: Spontaneous
  Country: US (occurrence: US)
  Receive Date: 20141027
  Receipt Date: 20141204
  Transmission Date: 20150529
  Serious: Yes (Death)
  Sender: FDA-Public Use
  Company Number: US-PFIZER INC-2014292084

PATIENT
  Age: 69 Year
  Sex: Male

DRUGS (2)
  1. XALKORI [Suspect]
     Active Substance: CRIZOTINIB
     Indication: LUNG NEOPLASM MALIGNANT
     Dosage: 250 MG, 2X/DAY (TAKE ONE CAPSULE (250MG) TWICE DAILY
     Dates: start: 20140910
  2. XALKORI [Suspect]
     Active Substance: CRIZOTINIB
     Dosage: 250 MG, 2X/DAY (TAKE 1 CAPSULE (250MG) TWICE DAILY
     Dates: start: 20140910

REACTIONS (8)
  - Death [Fatal]
  - Nausea [Unknown]
  - Dysgeusia [Unknown]
  - Dry mouth [Unknown]
  - Dry skin [Unknown]
  - Dyskinesia [Unknown]
  - Musculoskeletal pain [Unknown]
  - Decreased appetite [Unknown]

NARRATIVE: CASE EVENT DATE: 20141125
